FAERS Safety Report 8824289 (Version 1)
Quarter: 2012Q4

REPORT INFORMATION
  Report Type: 
  Country: FR (occurrence: FR)
  Receive Date: 20121004
  Receipt Date: 20121004
  Transmission Date: 20130627
  Serious: Yes (Other)
  Sender: FDA-Public Use
  Company Number: FR-US-EMD SERONO, INC.-7164154

PATIENT
  Sex: Female

DRUGS (1)
  1. REBIF [Suspect]
     Route: 065
     Dates: start: 20120509

REACTIONS (2)
  - Abortion spontaneous [Unknown]
  - Exposure via father [Unknown]
